FAERS Safety Report 20713434 (Version 2)
Quarter: 2022Q2

REPORT INFORMATION
  Report Type: Spontaneous
  Country: US (occurrence: US)
  Receive Date: 20220415
  Receipt Date: 20220615
  Transmission Date: 20220721
  Serious: No
  Sender: FDA-Public Use
  Company Number: US-MICRO LABS LIMITED-ML2022-01290

PATIENT
  Age: 73 Year
  Sex: Female

DRUGS (1)
  1. KETOROLAC TROMETHAMINE [Suspect]
     Active Substance: KETOROLAC TROMETHAMINE
     Indication: Cataract operation complication
     Dosage: DOSE: TWO DROPS
     Route: 047
     Dates: start: 20220328

REACTIONS (2)
  - Inappropriate schedule of product administration [Unknown]
  - Product container seal issue [Unknown]

NARRATIVE: CASE EVENT DATE: 20220328
